FAERS Safety Report 9346960 (Version 2)
Quarter: 2013Q4

REPORT INFORMATION
  Report Type: Spontaneous
  Country: US (occurrence: US)
  Receive Date: 20130613
  Receipt Date: 20131115
  Transmission Date: 20140711
  Serious: Yes (Hospitalization)
  Sender: FDA-Public Use
  Company Number: US-B.I. PHARMACEUTICALS,INC./RIDGEFIELD-2013-BI-16411BP

PATIENT
  Sex: Female
  Weight: 108.86 kg

DRUGS (9)
  1. PRADAXA [Suspect]
     Indication: ATRIAL FIBRILLATION
     Dates: start: 20110625, end: 20120304
  2. PRADAXA [Suspect]
     Indication: CARDIOVASCULAR EVENT PROPHYLAXIS
  3. ALLOPURINOL [Concomitant]
     Dates: start: 2010
  4. TRAMADOL [Concomitant]
     Dates: start: 2009
  5. COLCHICINE [Concomitant]
     Dates: start: 2008
  6. FOLIC ACID [Concomitant]
     Dates: start: 2011
  7. LEVETIRACETAM [Concomitant]
     Dates: start: 2011
  8. HYDROXYCHLOROQUINE [Concomitant]
     Dates: start: 2009
  9. MULTAQ [Concomitant]

REACTIONS (3)
  - Haemorrhage intracranial [Unknown]
  - Anaemia [Unknown]
  - Accelerated hypertension [Unknown]
